FAERS Safety Report 21139666 (Version 1)
Quarter: 2022Q3

REPORT INFORMATION
  Report Type: Spontaneous
  Country: CN (occurrence: CN)
  Receive Date: 20220727
  Receipt Date: 20220727
  Transmission Date: 20221026
  Serious: Yes (Other)
  Sender: FDA-Public Use
  Company Number: CN-BIOGEN-2022BI01142220

PATIENT
  Age: 2 Year
  Sex: Female

DRUGS (6)
  1. SPINRAZA [Suspect]
     Active Substance: NUSINERSEN
     Indication: Spinal muscular atrophy
     Dosage: 1ST DOSE
     Route: 050
     Dates: start: 20210907
  2. SPINRAZA [Suspect]
     Active Substance: NUSINERSEN
     Dosage: 2ND DOSE
     Route: 050
     Dates: start: 20210922
  3. SPINRAZA [Suspect]
     Active Substance: NUSINERSEN
     Dosage: 3RD DOSE
     Route: 050
     Dates: start: 20211009
  4. SPINRAZA [Suspect]
     Active Substance: NUSINERSEN
     Dosage: 4TH DOSE
     Route: 050
     Dates: start: 20211116
  5. SPINRAZA [Suspect]
     Active Substance: NUSINERSEN
     Dosage: 5TH DOSE
     Route: 050
     Dates: start: 20220318
  6. SPINRAZA [Suspect]
     Active Substance: NUSINERSEN
     Dosage: 6TH DOSE
     Route: 050
     Dates: start: 20220714

REACTIONS (3)
  - Femur fracture [Not Recovered/Not Resolved]
  - Fibrin D dimer increased [Not Recovered/Not Resolved]
  - Fibrin degradation products increased [Not Recovered/Not Resolved]

NARRATIVE: CASE EVENT DATE: 20220713
